FAERS Safety Report 9465741 (Version 1)
Quarter: 2013Q3

REPORT INFORMATION
  Report Type: Spontaneous
  Country: US (occurrence: US)
  Receive Date: 20130820
  Receipt Date: 20130820
  Transmission Date: 20140515
  Serious: Yes (Other)
  Sender: FDA-Public Use
  Company Number: US-ASTELLAS-2013US008826

PATIENT
  Sex: Male

DRUGS (2)
  1. AMBISOME [Suspect]
     Indication: MENINGITIS FUNGAL
     Dosage: UNK
     Route: 065
     Dates: end: 20130701
  2. AMBISOME [Suspect]
     Indication: MENINGITIS
     Dosage: UNK
     Route: 065
     Dates: end: 201301

REACTIONS (2)
  - Renal failure [Unknown]
  - Fatigue [Recovering/Resolving]
